FAERS Safety Report 17661630 (Version 1)
Quarter: 2020Q2

REPORT INFORMATION
  Report Type: Spontaneous
  Country: DE (occurrence: DE)
  Receive Date: 20200413
  Receipt Date: 20200413
  Transmission Date: 20200713
  Serious: Yes (Hospitalization)
  Sender: FDA-Public Use
  Company Number: DE-ADHERA THERAPEUTICS, INC.-2020ADHERA000627

PATIENT

DRUGS (2)
  1. VIACORAM [Suspect]
     Active Substance: AMLODIPINE BESYLATE\PERINDOPRIL ARGININE
     Indication: HYPERTENSION
     Dosage: 1 (3.5MG/2.5MG) TABLET, QD
     Route: 048
     Dates: start: 20190501, end: 201906
  2. AMLODIPINE W/INDAPAMIDE/PERINDOPRIL [Suspect]
     Active Substance: AMLODIPINE\INDAPAMIDE\PERINDOPRIL
     Indication: HYPERTENSION
     Dosage: 1 (7MG/5MG/2.5MG) ENTERIC TABLET, QD
     Route: 048
     Dates: start: 20190426, end: 20190430

REACTIONS (3)
  - Hypoaesthesia [Recovered/Resolved]
  - Paraesthesia [Recovered/Resolved]
  - Sensory loss [Recovered/Resolved]

NARRATIVE: CASE EVENT DATE: 20190430
